FAERS Safety Report 4369427-0 (Version None)
Quarter: 2004Q2

REPORT INFORMATION
  Report Type: 
  Country: None (occurrence: None)
  Receive Date: 20040527
  Receipt Date: 20040510
  Transmission Date: 20050107
  Serious: Yes (Other)
  Sender: FDA-Public Use
  Company Number: USA-2004-0015058

PATIENT
  Age: 37 Year
  Sex: Male

DRUGS (1)
  1. OXYCONTIN [Suspect]
     Indication: PAIN
     Dosage: 20 MG, UNK, UNKNOWN

REACTIONS (2)
  - COMPRESSION FRACTURE [None]
  - ROAD TRAFFIC ACCIDENT [None]
